FAERS Safety Report 5221603-0 (Version None)
Quarter: 2007Q1

REPORT INFORMATION
  Report Type: 
  Country: None (occurrence: None)
  Receive Date: 20070129
  Receipt Date: 20070119
  Transmission Date: 20070707
  Serious: Yes (Death, Hospitalization, Other)
  Sender: FDA-Public Use
  Company Number: CA-ELI_LILLY_AND_COMPANY-CA200701004353

PATIENT
  Age: 35 Year
  Sex: Male

DRUGS (2)
  1. ZYPREXA [Suspect]
     Indication: SCHIZOPHRENIA
     Dosage: UNK, UNK
     Dates: start: 20020101
  2. ZYPREXA ZYDIS [Suspect]
     Indication: SCHIZOPHRENIA
     Dosage: 40 MG, DAILY (1/D)

REACTIONS (17)
  - ABNORMAL BEHAVIOUR [None]
  - ASTHENIA [None]
  - BLOOD PRESSURE DECREASED [None]
  - BLOOD PRESSURE INCREASED [None]
  - COMA [None]
  - DIABETES MELLITUS [None]
  - HAEMORRHAGE [None]
  - HEPATIC FUNCTION ABNORMAL [None]
  - LOSS OF CONSCIOUSNESS [None]
  - MALAISE [None]
  - MENTAL DISORDER [None]
  - NON-HODGKIN'S LYMPHOMA [None]
  - PRESCRIBED OVERDOSE [None]
  - RENAL IMPAIRMENT [None]
  - SOCIAL AVOIDANT BEHAVIOUR [None]
  - THERAPEUTIC RESPONSE DECREASED [None]
  - TOTAL LUNG CAPACITY DECREASED [None]
